FAERS Safety Report 5733500-2 (Version None)
Quarter: 2008Q2

REPORT INFORMATION
  Report Type: 
  Country: None (occurrence: None)
  Receive Date: 20080509
  Receipt Date: 20080502
  Transmission Date: 20081010
  Serious: Yes (Hospitalization)
  Sender: FDA-Public Use
  Company Number: US-MERCK-0805USA00445

PATIENT
  Age: 67 Year
  Sex: Female
  Weight: 52 kg

DRUGS (9)
  1. DECADRON [Suspect]
     Route: 048
  2. REVLIMID [Suspect]
     Indication: MULTIPLE MYELOMA
     Route: 048
  3. REVLIMID [Suspect]
     Route: 048
     Dates: start: 20080101, end: 20080215
  4. APO LABETALOL [Concomitant]
     Route: 048
  5. BENICAR [Concomitant]
     Route: 048
  6. AMBIEN [Concomitant]
     Route: 048
  7. NORVASC [Concomitant]
     Route: 048
  8. AMLODIPINE BESYLATE [Concomitant]
     Route: 048
  9. WARFARIN [Concomitant]
     Route: 065

REACTIONS (1)
  - THROMBOSIS [None]
